FAERS Safety Report 17700149 (Version 3)
Quarter: 2020Q3

REPORT INFORMATION
  Report Type: Spontaneous
  Country: US (occurrence: US)
  Receive Date: 20200423
  Receipt Date: 20200730
  Transmission Date: 20201102
  Serious: No
  Sender: FDA-Public Use
  Company Number: US-VERTEX PHARMACEUTICALS-2020-009115

PATIENT
  Sex: Female
  Weight: 61 kg

DRUGS (2)
  1. TRIKAFTA [Suspect]
     Active Substance: ELEXACAFTOR\IVACAFTOR\TEZACAFTOR
     Dosage: 2 MORNING TABLETS TWICE A WEEK (MONDAY AND THURSDAYS)
     Route: 048
     Dates: start: 20200611
  2. TRIKAFTA [Suspect]
     Active Substance: ELEXACAFTOR\IVACAFTOR\TEZACAFTOR
     Indication: CYSTIC FIBROSIS
     Dosage: 100MG ELEXA/50MG TEZA/75MG IVA AND 150MG IVA (TRADITIONAL DOSE) AT REGULAR DOSE
     Route: 048
     Dates: start: 20200303, end: 20200427

REACTIONS (5)
  - Chromaturia [Unknown]
  - Vomiting [Unknown]
  - Nausea [Unknown]
  - Liver function test increased [Unknown]
  - Rash [Unknown]

NARRATIVE: CASE EVENT DATE: 2020
